FAERS Safety Report 9048510 (Version 1)
Quarter: 2013Q1

REPORT INFORMATION
  Report Type: Spontaneous
  Country: US (occurrence: None)
  Receive Date: 20130130
  Receipt Date: 20130130
  Transmission Date: 20140127
  Serious: Yes (Hospitalization)
  Sender: FDA-Public Use
  Company Number: None

PATIENT
  Sex: Male

DRUGS (15)
  1. PLAVIX [Suspect]
     Indication: CORONARY ARTERY DISEASE
     Dosage: CHRONIC
     Route: 048
  2. COUMADIN [Suspect]
     Indication: CORONARY ARTERY DISEASE
     Dosage: 5MG TWTHFSAT/ PO?CHRONIC
     Route: 048
  3. ECASA [Suspect]
     Indication: CORONARY ARTERY DISEASE
     Route: 048
  4. KLOR-CON [Concomitant]
  5. CRESTOR [Concomitant]
  6. ADVAIR [Concomitant]
  7. ATROVENT [Concomitant]
  8. ATROVENT [Concomitant]
  9. DIGOXIN [Concomitant]
  10. PROZAC [Concomitant]
  11. CARDIZEM [Concomitant]
  12. JANUVIA [Concomitant]
  13. SPIRIVIA [Concomitant]
  14. PROTONIX [Concomitant]
  15. LAXIX [Concomitant]

REACTIONS (4)
  - Haematuria [None]
  - Device occlusion [None]
  - International normalised ratio increased [None]
  - Overdose [None]
